FAERS Safety Report 9744868 (Version 1)
Quarter: 2013Q4

REPORT INFORMATION
  Report Type: Report from Study
  Country: US (occurrence: US)
  Receive Date: 20131211
  Receipt Date: 20131211
  Transmission Date: 20140711
  Serious: Yes (Disabling, Other)
  Sender: FDA-Public Use
  Company Number: US-ROCHE-1316058

PATIENT
  Sex: Male

DRUGS (2)
  1. LUCENTIS [Suspect]
     Indication: EYE HAEMORRHAGE
     Dosage: LEFT EYE, RECEIVED 1 INJECTION ON JAN OR FEB
     Route: 065
     Dates: start: 2013, end: 2013
  2. JANUVIA [Concomitant]
     Indication: DIABETES MELLITUS

REACTIONS (2)
  - Infection [Unknown]
  - Eye prosthesis insertion [Unknown]
